FAERS Safety Report 7450235-9 (Version None)
Quarter: 2011Q2

REPORT INFORMATION
  Report Type: 
  Country: None (occurrence: None)
  Receive Date: 20110422
  Receipt Date: 20110419
  Transmission Date: 20111010
  Serious: Yes (Other)
  Sender: FDA-Public Use
  Company Number: GRT 2011-11541

PATIENT
  Age: 33 Year
  Sex: Male

DRUGS (14)
  1. CITAXORAL (SODIUM PICOSULFATE) [Concomitant]
  2. LYRICA [Suspect]
     Dosage: 150MG/DAY
     Dates: start: 20090501
  3. OMEPRAZOLE [Concomitant]
  4. STESOLID XYLOPROCT (ALUMIMIUM DIACETATE  HYDROCORTISONE ACETATE  LIDOC [Concomitant]
  5. PANOCOD 30/500MG (CODAINE PHOSPHATE, PARACETAMO) [Concomitant]
  6. LIDODERM [Suspect]
     Indication: NEURALGIA
     Dosage: 1 PATCH A DAY
     Dates: start: 20090501
  7. LIDODERM [Suspect]
     Indication: NEURITIS
     Dosage: 1 PATCH A DAY
     Dates: start: 20090501
  8. PRIMPERAN TAB [Concomitant]
  9. TOILAX (BISACODYL) 10MG/ML [Concomitant]
  10. ZOLPIDEM [Concomitant]
  11. PROPIOMAZINE MALEATE (PROPAVAN) [Suspect]
     Indication: INSOMNIA
     Dosage: 50MG, 1 A DAY
     Dates: start: 20090501
  12. NITROMEX (GLYCERYL TRINITRATE) [Concomitant]
  13. ORSTANORM (DIHYDROERGOTAMINE MESILATE) [Concomitant]
  14. METHADONE HCL [Concomitant]

REACTIONS (2)
  - PRIAPISM [None]
  - ERECTILE DYSFUNCTION [None]
